FAERS Safety Report 20066270 (Version 1)
Quarter: 2021Q4

REPORT INFORMATION
  Report Type: Spontaneous
  Country: FR (occurrence: FR)
  Receive Date: 20211114
  Receipt Date: 20211114
  Transmission Date: 20220303
  Serious: Yes (Hospitalization, Other)
  Sender: FDA-Public Use
  Company Number: FR-ABBVIE-21K-056-4158880-00

PATIENT
  Sex: Female

DRUGS (19)
  1. VALPROATE SODIUM [Suspect]
     Active Substance: VALPROATE SODIUM
     Indication: Epilepsy
     Route: 065
     Dates: start: 200903
  2. VALPROATE SODIUM [Suspect]
     Active Substance: VALPROATE SODIUM
     Dosage: 1 ,5 TABLETS IN THE MORNING AND 2 IN THE EVENING DURING 5 DAYS
     Route: 048
     Dates: start: 20110105, end: 20110202
  3. VALPROATE SODIUM [Suspect]
     Active Substance: VALPROATE SODIUM
     Dosage: PROGRESSIVE DIMINUTION;
     Route: 065
     Dates: start: 20110202, end: 20110301
  4. VALPROATE SODIUM [Suspect]
     Active Substance: VALPROATE SODIUM
     Dosage: 1 IN THE EVENING
     Route: 065
     Dates: start: 20110301, end: 20110526
  5. CLOBAZAM [Suspect]
     Active Substance: CLOBAZAM
     Indication: Product used for unknown indication
     Dosage: 1 IN THE MORNING
     Route: 065
     Dates: start: 20110105, end: 20110202
  6. CLOBAZAM [Suspect]
     Active Substance: CLOBAZAM
     Dosage: 1 IN THE MORNING AND HALF IN THE EVENING.
     Route: 065
     Dates: start: 20110202, end: 20110301
  7. CLOBAZAM [Suspect]
     Active Substance: CLOBAZAM
     Dosage: 1 IN THE EVENING
     Route: 065
     Dates: start: 20110301, end: 20110526
  8. CLOBAZAM [Suspect]
     Active Substance: CLOBAZAM
     Dosage: 1 IN THE MORNING AND HALF IN THE EVENING
     Route: 065
     Dates: start: 20110526, end: 20110802
  9. ASPIRIN DL-LYSINE [Suspect]
     Active Substance: ASPIRIN DL-LYSINE
     Indication: Product used for unknown indication
     Dosage: 1 AT LUNCH
     Route: 065
     Dates: start: 20110202, end: 20110301
  10. ASPIRIN DL-LYSINE [Suspect]
     Active Substance: ASPIRIN DL-LYSINE
     Route: 065
     Dates: start: 20110301, end: 20110526
  11. ASPIRIN DL-LYSINE [Suspect]
     Active Substance: ASPIRIN DL-LYSINE
     Route: 065
     Dates: start: 20110526, end: 20110802
  12. LEVETIRACETAM [Suspect]
     Active Substance: LEVETIRACETAM
     Indication: Product used for unknown indication
     Dosage: 2 IN THE MORNING, 2 IN THE EVENING
     Route: 065
     Dates: start: 20110105, end: 20110202
  13. LEVETIRACETAM [Suspect]
     Active Substance: LEVETIRACETAM
     Dosage: 1 IN THE MORNING AND 2 IN THE EVENING THEN 1 IN THE MORNING AND IN THE EVENING
     Route: 065
     Dates: start: 20110202, end: 20110301
  14. LEVETIRACETAM [Suspect]
     Active Substance: LEVETIRACETAM
     Dosage: 3 IN THE MORNING AND IN THE EVENING
     Route: 065
     Dates: start: 20110301, end: 20110526
  15. LEVETIRACETAM [Suspect]
     Active Substance: LEVETIRACETAM
     Dosage: 3 IN THE MORNING AND IN THE EVENING
     Route: 065
     Dates: start: 20110526, end: 20110802
  16. FOLIC ACID [Concomitant]
     Active Substance: FOLIC ACID
     Indication: Product used for unknown indication
     Route: 065
     Dates: start: 201101, end: 20110802
  17. FOLIC ACID [Concomitant]
     Active Substance: FOLIC ACID
     Indication: Product used for unknown indication
     Route: 065
     Dates: start: 201101
  18. NIFEDIPINE [Concomitant]
     Active Substance: NIFEDIPINE
     Indication: Product used for unknown indication
     Route: 065
  19. CELESTENE [Concomitant]
     Indication: Product used for unknown indication
     Route: 065

REACTIONS (13)
  - Uterine contractions abnormal [Unknown]
  - Pain in extremity [Unknown]
  - Generalised tonic-clonic seizure [Unknown]
  - Migraine [Unknown]
  - Loss of consciousness [Unknown]
  - Seizure [Unknown]
  - Fall [Unknown]
  - Sensory loss [Unknown]
  - Maternal exposure during pregnancy [Unknown]
  - Live birth [Unknown]
  - Nausea [Unknown]
  - Vomiting [Unknown]
  - Intermenstrual bleeding [Unknown]

NARRATIVE: CASE EVENT DATE: 20110728
